FAERS Safety Report 8979806 (Version 4)
Quarter: 2013Q3

REPORT INFORMATION
  Report Type: Spontaneous
  Country: FR (occurrence: FR)
  Receive Date: 20121221
  Receipt Date: 20130701
  Transmission Date: 20140515
  Serious: Yes (Hospitalization, Other)
  Sender: FDA-Public Use
  Company Number: PHHY2012FR110059

PATIENT
  Age: 70 Year
  Sex: Male

DRUGS (14)
  1. CERTICAN [Suspect]
     Indication: LIVER TRANSPLANT
     Dosage: 1 MG, QD
     Route: 048
     Dates: start: 20111019, end: 20121123
  2. CERTICAN [Suspect]
     Dosage: 0.5 MG, BID
     Route: 048
     Dates: start: 20121123, end: 20121207
  3. UVEDOSE [Concomitant]
     Dosage: UKN, QMO
     Route: 048
  4. PROGRAF [Concomitant]
     Indication: LIVER TRANSPLANT
     Dosage: UNK
     Dates: end: 20130531
  5. ADVAGRAF [Concomitant]
     Dosage: 1 MG, DAILY
  6. MYFORTIC [Concomitant]
     Indication: LIVER TRANSPLANT
     Dosage: 720 MG, BID
     Route: 048
     Dates: start: 201109
  7. ANGIOTENSIN CONVERTING ENZYME BLOCKERS [Concomitant]
     Dosage: UNK
  8. DIURETICS [Concomitant]
     Dosage: UNK
  9. VITAMIN D3 [Concomitant]
     Dosage: UNK
  10. LASILIX [Concomitant]
     Dosage: 40 MG, QD
     Route: 048
  11. DUPHALAC [Concomitant]
     Dosage: 6 DF, QD
     Route: 048
  12. PROPANOLOL [Concomitant]
     Dosage: 160 MG, QD
     Route: 048
  13. DELURSAN [Concomitant]
     Dosage: 500 MG, BID
     Route: 048
  14. ALDACTONE [Concomitant]
     Dosage: UNK
     Dates: end: 201207

REACTIONS (9)
  - Nephroangiosclerosis [Unknown]
  - Renal tubular necrosis [Unknown]
  - Blood creatinine increased [Unknown]
  - Nephropathy toxic [Unknown]
  - Renal failure [Recovering/Resolving]
  - Creatinine renal clearance decreased [Unknown]
  - Anaemia [Unknown]
  - Haemoglobin decreased [Unknown]
  - Incorrect dose administered [Unknown]
